FAERS Safety Report 6946625-0 (Version None)
Quarter: 2010Q3

REPORT INFORMATION
  Report Type: 
  Country: None (occurrence: None)
  Receive Date: 20100825
  Receipt Date: 20100811
  Transmission Date: 20110219
  Serious: Yes (Death, Other)
  Sender: FDA-Public Use
  Company Number: 2010AL003507

PATIENT
  Age: 28 Year
  Sex: Male

DRUGS (8)
  1. OXYCODONE HCL [Suspect]
  2. NAPROXEN [Suspect]
  3. DIAZEPAM [Suspect]
  4. DIHYDROCODEINE BITARTRATE INJ [Concomitant]
  5. AMRTRIPTYLINE [Concomitant]
  6. NORTRIPTYLINE HCL [Concomitant]
  7. ZOPICLONE [Concomitant]
  8. NORDAZEPAM [Concomitant]

REACTIONS (3)
  - BLOOD ALCOHOL INCREASED [None]
  - OVERDOSE [None]
  - RESPIRATORY DEPRESSION [None]
